FAERS Safety Report 18324274 (Version 1)
Quarter: 2020Q3

REPORT INFORMATION
  Report Type: Spontaneous
  Country: BR (occurrence: BR)
  Receive Date: 20200929
  Receipt Date: 20200929
  Transmission Date: 20201103
  Serious: Yes (Other)
  Sender: FDA-Public Use
  Company Number: BR-GLAXOSMITHKLINE-BR2020AMR190316

PATIENT
  Age: 77 Year
  Sex: Female
  Weight: 59 kg

DRUGS (2)
  1. RELVAR ELLIPTA [Suspect]
     Active Substance: FLUTICASONE FUROATE\VILANTEROL TRIFENATATE
     Indication: ASTHMA
     Dosage: 1 PUFF(S), QD
  2. VANISTO [Suspect]
     Active Substance: UMECLIDINIUM BROMIDE
     Indication: ASTHMA
     Dosage: 1 PUFF(S), QD 62.5 UG

REACTIONS (6)
  - Apnoea [Unknown]
  - Drug ineffective for unapproved indication [Unknown]
  - Anosmia [Unknown]
  - Increased bronchial secretion [Recovering/Resolving]
  - Product use in unapproved indication [Unknown]
  - Ageusia [Unknown]

NARRATIVE: CASE EVENT DATE: 202004
